FAERS Safety Report 6407088-7 (Version None)
Quarter: 2009Q4

REPORT INFORMATION
  Report Type: 
  Country: None (occurrence: None)
  Receive Date: 20091020
  Receipt Date: 20091005
  Transmission Date: 20100525
  Serious: Yes (Other)
  Sender: FDA-Public Use
  Company Number: AU-ROCHE-661324

PATIENT
  Age: 53 Year
  Sex: Male

DRUGS (12)
  1. SAQUINAVIR [Suspect]
     Indication: HIV INFECTION
     Route: 065
  2. NELFINAVIR MESYLATE [Suspect]
     Indication: HIV INFECTION
     Route: 065
  3. LAMIVUDINE [Suspect]
     Indication: HIV INFECTION
     Route: 065
  4. DIDANOSINE [Suspect]
     Indication: HIV INFECTION
     Route: 065
  5. VIRAMUNE [Suspect]
     Indication: HIV INFECTION
     Route: 065
  6. ZIDOVUDINE [Suspect]
     Indication: HIV INFECTION
     Route: 065
  7. NEVIRAPINE [Suspect]
     Indication: HIV INFECTION
     Route: 065
  8. EFAVIRENZ [Suspect]
     Indication: HIV INFECTION
     Route: 065
  9. EMTRICITABINE [Suspect]
     Indication: HIV INFECTION
     Route: 065
  10. RITONAVIR [Suspect]
     Indication: HIV INFECTION
     Route: 065
  11. ATAZANAVIR [Suspect]
     Indication: HIV INFECTION
     Route: 065
  12. TENOFOVIR [Suspect]
     Indication: HIV INFECTION
     Route: 065

REACTIONS (1)
  - PARKINSONISM [None]
